FAERS Safety Report 8285360-6 (Version None)
Quarter: 2012Q2

REPORT INFORMATION
  Report Type: 
  Country: None (occurrence: None)
  Receive Date: 20120413
  Receipt Date: 20120410
  Transmission Date: 20120825
  Serious: No
  Sender: FDA-Public Use
  Company Number: US-PFIZER INC-2012090075

PATIENT
  Sex: Female
  Weight: 79 kg

DRUGS (4)
  1. TEGRETOL [Concomitant]
     Indication: BIPOLAR DISORDER
     Dosage: 1200 MG, (DAILY)
     Route: 048
     Dates: start: 19940101
  2. LIPITOR [Suspect]
     Indication: LOW DENSITY LIPOPROTEIN INCREASED
     Dosage: UNK
     Dates: start: 20100101, end: 20100101
  3. ZOLOFT [Concomitant]
     Indication: BIPOLAR DISORDER
     Dosage: 400 MG, DAILY
     Route: 048
     Dates: start: 19940101
  4. TYLENOL (CAPLET) [Concomitant]
     Indication: OSTEOARTHRITIS
     Dosage: UNK, AS NEEDED

REACTIONS (1)
  - MUSCULAR WEAKNESS [None]
